FAERS Safety Report 14790367 (Version 1)
Quarter: 2018Q2

REPORT INFORMATION
  Report Type: Spontaneous
  Country: US (occurrence: US)
  Receive Date: 20180413
  Receipt Date: 20180413
  Transmission Date: 20180711
  Serious: Yes (Life-Threatening, Other)
  Sender: FDA-Public Use
  Company Number: None

PATIENT
  Age: 18 Year
  Sex: Female

DRUGS (1)
  1. ABCIXIMAB [Suspect]
     Active Substance: ABCIXIMAB
     Indication: THROMBOSIS PROPHYLAXIS
     Route: 040

REACTIONS (7)
  - Vasospasm [None]
  - Extradural haematoma [None]
  - Aphasia [None]
  - Intracranial pressure increased [None]
  - Facial paralysis [None]
  - Ruptured cerebral aneurysm [None]
  - Condition aggravated [None]

NARRATIVE: CASE EVENT DATE: 20171107
